FAERS Safety Report 21615766 (Version 1)
Quarter: 2022Q4

REPORT INFORMATION
  Report Type: Other
  Country: None (occurrence: US)
  Receive Date: 20221118
  Receipt Date: 20221118
  Transmission Date: 20230112
  Serious: Yes (Hospitalization, Other)
  Sender: FDA-Public Use
  Company Number: US-B.Braun Medical Inc.-2135051

PATIENT
  Age: 61 Year
  Sex: Male

DRUGS (2)
  1. CEFEPIME HYDROCHLORIDE AND DEXTROSE [Suspect]
     Active Substance: CEFEPIME HYDROCHLORIDE
  2. VANCOMYCIN HYDROCHLORIDE [Suspect]
     Active Substance: VANCOMYCIN HYDROCHLORIDE

REACTIONS (1)
  - Drug reaction with eosinophilia and systemic symptoms [Recovered/Resolved]
